FAERS Safety Report 7309924-9 (Version None)
Quarter: 2011Q1

REPORT INFORMATION
  Report Type: 
  Country: None (occurrence: None)
  Receive Date: 20110224
  Receipt Date: 20110217
  Transmission Date: 20110831
  Serious: No
  Sender: FDA-Public Use
  Company Number: US-TEVA-268124USA

PATIENT
  Age: 41 Year
  Sex: Female

DRUGS (6)
  1. PLAN B ONE-STEP [Suspect]
     Route: 048
     Dates: start: 20101201, end: 20101201
  2. CLONAZEPAM [Concomitant]
     Indication: ANXIETY
     Route: 048
  3. PLAN B ONE-STEP [Suspect]
     Route: 048
  4. PLAN B ONE-STEP [Suspect]
     Route: 048
     Dates: start: 20101101, end: 20101101
  5. CLONAZEPAM [Concomitant]
     Indication: DEPRESSION
  6. PLAN B ONE-STEP [Suspect]
     Indication: POST COITAL CONTRACEPTION
     Route: 048

REACTIONS (2)
  - MENSTRUATION IRREGULAR [None]
  - MENSTRUATION DELAYED [None]
